FAERS Safety Report 13507253 (Version 1)
Quarter: 2017Q2

REPORT INFORMATION
  Report Type: Spontaneous
  Country: US (occurrence: US)
  Receive Date: 20170503
  Receipt Date: 20170503
  Transmission Date: 20170830
  Serious: No
  Sender: FDA-Public Use
  Company Number: US-TEVA-727155ACC

PATIENT
  Sex: Female

DRUGS (2)
  1. MICON CRM-A [Suspect]
     Active Substance: MICONAZOLE
  2. MONISTAT [Concomitant]
     Active Substance: MICONAZOLE NITRATE

REACTIONS (1)
  - Burning sensation [Unknown]

NARRATIVE: CASE EVENT DATE: 201611
